FAERS Safety Report 9083297 (Version 2)
Quarter: 2013Q2

REPORT INFORMATION
  Report Type: Spontaneous
  Country: DE (occurrence: DE)
  Receive Date: 20130218
  Receipt Date: 20130408
  Transmission Date: 20140414
  Serious: Yes (Hospitalization)
  Sender: FDA-Public Use
  Company Number: PHHY2013DE015317

PATIENT
  Age: 72 Year
  Sex: Male

DRUGS (5)
  1. ZOMETA [Suspect]
     Indication: METASTASES TO BONE
     Dosage: 4 MG, MONTHLY
     Dates: start: 20121002
  2. LEUPRONE HEXAL [Suspect]
     Indication: PROSTATE CANCER
     Dosage: 5 MG, MONTHLY
     Route: 058
     Dates: start: 20120730
  3. LYRICA [Suspect]
     Indication: PAIN
     Dosage: 75 MG, QD
     Route: 048
  4. BISOPROLOL [Concomitant]
     Indication: HYPERTENSION
     Dosage: 2.5 MG, QD
     Route: 048
  5. ASS [Concomitant]
     Indication: PROPHYLAXIS
     Dosage: 100 MG, QD

REACTIONS (1)
  - Transient ischaemic attack [Recovered/Resolved]
